FAERS Safety Report 7864642-3 (Version None)
Quarter: 2011Q4

REPORT INFORMATION
  Report Type: 
  Country: None (occurrence: None)
  Receive Date: 20111028
  Receipt Date: 20111026
  Transmission Date: 20120403
  Serious: Yes (Death, Life-Threatening, Hospitalization)
  Sender: FDA-Public Use
  Company Number: JP-JNJFOC-20100205534

PATIENT
  Sex: Female
  Weight: 67 kg

DRUGS (9)
  1. DOXORUBICIN HCL [Suspect]
     Route: 042
     Dates: start: 20090901, end: 20090901
  2. DOXORUBICIN HCL [Suspect]
     Indication: OVARIAN CANCER RECURRENT
     Route: 042
     Dates: start: 20090806, end: 20090806
  3. FLAVITAN [Concomitant]
     Indication: PROPHYLAXIS
     Route: 048
     Dates: start: 20090406, end: 20091101
  4. PYDOXAL [Concomitant]
     Indication: PROPHYLAXIS
     Route: 048
     Dates: start: 20090806, end: 20091101
  5. DOXORUBICIN HCL [Suspect]
     Route: 042
     Dates: start: 20091008, end: 20091008
  6. LEVOTHYROXINE SODIUM [Concomitant]
     Route: 048
     Dates: end: 20091101
  7. LOXONIN [Concomitant]
     Route: 048
     Dates: start: 20090331, end: 20091101
  8. AZUNOL [Concomitant]
     Indication: PROPHYLAXIS
     Route: 049
     Dates: start: 20090806, end: 20091101
  9. MARZULENE-S [Concomitant]
     Route: 048
     Dates: start: 20090331, end: 20091101

REACTIONS (3)
  - LIVER FUNCTION TEST ABNORMAL [None]
  - PLATELET COUNT DECREASED [None]
  - OVARIAN CANCER RECURRENT [None]
